FAERS Safety Report 11091230 (Version 1)
Quarter: 2015Q2

REPORT INFORMATION
  Report Type: Spontaneous
  Country: US (occurrence: US)
  Receive Date: 20150505
  Receipt Date: 20150505
  Transmission Date: 20150821
  Serious: No
  Sender: FDA-Public Use
  Company Number: US-PFIZER INC-2015118448

PATIENT
  Age: 60 Year
  Sex: Female
  Weight: 69 kg

DRUGS (12)
  1. PREMARIN [Suspect]
     Active Substance: ESTROGENS, CONJUGATED
     Indication: HORMONE REPLACEMENT THERAPY
  2. PROPRANOLOL [Concomitant]
     Active Substance: PROPRANOLOL\PROPRANOLOL HYDROCHLORIDE
     Indication: HEART RATE INCREASED
     Dosage: 20 MG, 3X/DAY
  3. TOPAMAX [Concomitant]
     Active Substance: TOPIRAMATE
     Indication: MIGRAINE
     Dosage: 50 MG, 3X/DAY
     Dates: start: 2004
  4. ASPIRIN. [Concomitant]
     Active Substance: ASPIRIN
     Dosage: 81 MG, UNK
  5. LIBRAX [Concomitant]
     Active Substance: CHLORDIAZEPOXIDE HYDROCHLORIDE\CLIDINIUM BROMIDE
     Indication: GASTROINTESTINAL PAIN
     Dosage: UNK
  6. PREMARIN [Suspect]
     Active Substance: ESTROGENS, CONJUGATED
     Indication: ENDOMETRIOSIS
  7. PREMARIN [Suspect]
     Active Substance: ESTROGENS, CONJUGATED
     Indication: OVARIAN CYST
  8. LIPITOR [Concomitant]
     Active Substance: ATORVASTATIN CALCIUM
     Dosage: UNK, 1X/DAY
  9. PREMARIN [Suspect]
     Active Substance: ESTROGENS, CONJUGATED
     Indication: OOPHORECTOMY
     Dosage: 0.3 MG, 1X/DAY
  10. LEVOTHYROXINE [Concomitant]
     Active Substance: LEVOTHYROXINE
     Indication: HYPOTHYROIDISM
     Dosage: UNK, 3X/DAY
  11. ATORVASTATIN CALCIUM. [Concomitant]
     Active Substance: ATORVASTATIN CALCIUM
     Dosage: 10 MG, 1X/DAY
  12. OMEPRAZOLE. [Concomitant]
     Active Substance: OMEPRAZOLE
     Dosage: UNK

REACTIONS (2)
  - Insomnia [Unknown]
  - Hot flush [Unknown]
